FAERS Safety Report 9605347 (Version 1)
Quarter: 2013Q4

REPORT INFORMATION
  Report Type: Spontaneous
  Country: US (occurrence: US)
  Receive Date: 20131008
  Receipt Date: 20131008
  Transmission Date: 20140711
  Serious: Yes (Life-Threatening, Hospitalization, Disabling)
  Sender: FDA-Public Use
  Company Number: US-BAYER-2013-120566

PATIENT
  Age: 46 Year
  Sex: Male

DRUGS (7)
  1. AVELOX [Suspect]
     Indication: SINUSITIS
     Dosage: 400 MG, QD
     Route: 048
     Dates: start: 20130923, end: 20130925
  2. DEPAKOTE [Concomitant]
  3. PAXIL [Concomitant]
  4. PLAVIX [Concomitant]
  5. ATENOLOL [Concomitant]
  6. PERCOCET [Concomitant]
  7. FLEXERIL [Concomitant]

REACTIONS (6)
  - Pruritus genital [Recovering/Resolving]
  - Genital burning sensation [Recovering/Resolving]
  - Blister [Recovering/Resolving]
  - Skin exfoliation [Recovering/Resolving]
  - Vertigo [Recovering/Resolving]
  - Fatigue [Recovering/Resolving]
